FAERS Safety Report 4446837-4 (Version None)
Quarter: 2004Q3

REPORT INFORMATION
  Report Type: 
  Country: None (occurrence: None)
  Receive Date: 20040908
  Receipt Date: 20040825
  Transmission Date: 20050211
  Serious: Yes (Other)
  Sender: FDA-Public Use
  Company Number: 2004230796US

PATIENT
  Sex: Female

DRUGS (5)
  1. PROVERA [Suspect]
  2. PREMPRO [Suspect]
  3. PREMARIN [Suspect]
  4. ESTROGEN () [Suspect]
  5. MEDROXYPROGESTERONE [Suspect]

REACTIONS (2)
  - ASTHMA [None]
  - BREAST CANCER FEMALE [None]
